FAERS Safety Report 24352652 (Version 1)
Quarter: 2024Q3

REPORT INFORMATION
  Report Type: Report from Study
  Country: IT (occurrence: IT)
  Receive Date: 20240923
  Receipt Date: 20240923
  Transmission Date: 20241016
  Serious: No
  Sender: ROCHE
  Company Number: None

PATIENT
  Age: 78 Year
  Sex: Female
  Weight: 80.0 kg

DRUGS (2)
  1. TRASTUZUMAB [Suspect]
     Active Substance: TRASTUZUMAB
     Indication: Breast cancer
     Dosage: II CYCLE - START OF THERAPY 08/08/2023 - EVERY 21 DAYS
     Route: 041
     Dates: start: 20230830, end: 20230830
  2. PACLITAXEL [Suspect]
     Active Substance: PACLITAXEL
     Indication: Breast cancer
     Dosage: START OF THERAPY 08/08/2023 - WEEKLY PACLITAXEL (2ND CYCLE - 6 ADMINISTRATION) + TRASTUZUMAB EVERY 2
     Route: 065
     Dates: start: 20230913, end: 20230913

REACTIONS (4)
  - Red blood cell count decreased [Recovering/Resolving]
  - Haemoglobin decreased [Recovered/Resolved]
  - Vertigo [Not Recovered/Not Resolved]
  - Asthenia [Recovered/Resolved]

NARRATIVE: CASE EVENT DATE: 20230914
